FAERS Safety Report 8062470-X (Version None)
Quarter: 2012Q1

REPORT INFORMATION
  Report Type: 
  Country: None (occurrence: None)
  Receive Date: 20120123
  Receipt Date: 20120113
  Transmission Date: 20120608
  Serious: Yes (Hospitalization, Disabling, Other)
  Sender: FDA-Public Use
  Company Number: US-JNJFOC-20110911146

PATIENT
  Sex: Female
  Weight: 58.5 kg

DRUGS (3)
  1. REMICADE [Suspect]
     Indication: CROHN'S DISEASE
     Route: 042
  2. REMICADE [Suspect]
     Indication: COLITIS ULCERATIVE
     Route: 042
  3. FERREX [Concomitant]
     Indication: IRON DEFICIENCY
     Dosage: DIVIDED DOSE DAILY
     Route: 065

REACTIONS (4)
  - DRUG HYPERSENSITIVITY [None]
  - MYALGIA [None]
  - JOINT SWELLING [None]
  - DRUG INEFFECTIVE [None]
